FAERS Safety Report 9340014 (Version 1)
Quarter: 2013Q2

REPORT INFORMATION
  Report Type: Spontaneous
  Country: GB (occurrence: None)
  Receive Date: 20130605
  Receipt Date: 20130605
  Transmission Date: 20140414
  Serious: Yes (Hospitalization, Other)
  Sender: FDA-Public Use
  Company Number: 1734223

PATIENT
  Age: 63 Year
  Sex: Male

DRUGS (7)
  1. (VINCRISTINE SULFATE) [Suspect]
     Indication: LYMPHOMA
     Dates: start: 20130321
  2. DOXORUBICIN HYDROCHLORIDE [Suspect]
     Indication: LYMPHOMA
     Dates: start: 20130321
  3. CLOZAPINE [Suspect]
     Indication: SCHIZOPHRENIA
     Route: 048
     Dates: start: 20011022, end: 20130421
  4. RITUXIMAB [Suspect]
     Indication: LYMPHOMA
     Dates: start: 20130321
  5. PREDNISOLONE [Suspect]
     Indication: LYMPHOMA
     Dates: start: 20130321
  6. CYCLOPHOSPHAMIDE [Suspect]
     Indication: LYMPHOMA
     Dates: start: 20130321
  7. GRANULOCYTE COLONY STIMULATING FACTOR [Concomitant]

REACTIONS (3)
  - Abdominal pain [None]
  - Gastrointestinal haemorrhage [None]
  - Platelet count decreased [None]
